FAERS Safety Report 8001150 (Version 3)
Quarter: 2012Q4

REPORT INFORMATION
  Report Type: Report from Study
  Country: DE (occurrence: DE)
  Receive Date: 20110621
  Receipt Date: 20120829
  Transmission Date: 20130627
  Serious: Yes (Hospitalization)
  Sender: FDA-Public Use
  Company Number: DE-BAXTER-2011BH018291

PATIENT
  Age: 64 Year
  Sex: Female
  Weight: 87 kg

DRUGS (1)
  1. TISSUCOL DUO S 2 ML IMMUNO [Suspect]
     Indication: WOUND CLOSURE
     Dates: start: 20110408, end: 20110408

REACTIONS (2)
  - Postoperative wound infection [Recovered/Resolved]
  - Pancreatic fistula [Not Recovered/Not Resolved]
